FAERS Safety Report 24883091 (Version 2)
Quarter: 2025Q1

REPORT INFORMATION
  Report Type: Report from Study
  Country: US (occurrence: US)
  Receive Date: 20250124
  Receipt Date: 20250130
  Transmission Date: 20250408
  Serious: Yes (Hospitalization)
  Sender: ACADIA PHARMACEUTICALS
  Company Number: US-ACADIA PHARMACEUTICALS INC.-ACA-2025-PIM-000373

PATIENT
  Age: 71 Year
  Sex: Male

DRUGS (16)
  1. NUPLAZID [Suspect]
     Active Substance: PIMAVANSERIN TARTRATE
     Indication: Parkinson^s disease
     Dosage: 10 MILLIGRAM, QD
     Route: 048
     Dates: start: 20231222
  2. FAMOTIDINE [Concomitant]
     Active Substance: FAMOTIDINE
  3. FUROSEMIDE [Concomitant]
     Active Substance: FUROSEMIDE
  4. METOPROLOL TARTRATE [Concomitant]
     Active Substance: METOPROLOL TARTRATE
  5. OTREXUP [Concomitant]
     Active Substance: METHOTREXATE
     Dosage: 0.4 MILLILITER, QID
  6. AMIODARONE [Concomitant]
     Active Substance: AMIODARONE
  7. ANORO ELLIPTA [Concomitant]
     Active Substance: UMECLIDINIUM BROMIDE\VILANTEROL TRIFENATATE
     Route: 048
  8. CARBIDOPA\LEVODOPA [Concomitant]
     Active Substance: CARBIDOPA\LEVODOPA
  9. ELIQUIS [Concomitant]
     Active Substance: APIXABAN
  10. FOLIC ACID [Concomitant]
     Active Substance: FOLIC ACID
     Indication: Vitamin supplementation
  11. NORCO [Concomitant]
     Active Substance: ACETAMINOPHEN\HYDROCODONE BITARTRATE
  12. RIVASTIGMINE [Concomitant]
     Active Substance: RIVASTIGMINE
  13. TIZANIDINE [Concomitant]
     Active Substance: TIZANIDINE
  14. LISINOPRIL [Concomitant]
     Active Substance: LISINOPRIL
  15. VITAMIN B12 [Concomitant]
     Active Substance: CYANOCOBALAMIN
     Indication: Vitamin supplementation
  16. VITAMIN D3 [Concomitant]
     Active Substance: CHOLECALCIFEROL
     Indication: Vitamin supplementation

REACTIONS (1)
  - Road traffic accident [Not Recovered/Not Resolved]

NARRATIVE: CASE EVENT DATE: 20250101
